FAERS Safety Report 5329973-X (Version None)
Quarter: 2007Q2

REPORT INFORMATION
  Report Type: 
  Country: None (occurrence: None)
  Receive Date: 20070521
  Receipt Date: 20070518
  Transmission Date: 20071010
  Serious: Yes (Other)
  Sender: FDA-Public Use
  Company Number: A0634780A

PATIENT
  Age: 53 Year
  Sex: Male
  Weight: 79.1 kg

DRUGS (6)
  1. REQUIP [Suspect]
     Indication: DRUG USE FOR UNKNOWN INDICATION
     Dates: start: 20061201
  2. ZESTRIL [Concomitant]
     Indication: HYPERTENSION
  3. LIPITOR [Concomitant]
  4. ALLOPURINOL [Concomitant]
     Indication: GOUT
  5. WELLBUTRIN [Concomitant]
     Indication: DEPRESSION
  6. ASPIRIN [Concomitant]

REACTIONS (6)
  - DISORIENTATION [None]
  - DISTURBANCE IN ATTENTION [None]
  - INCORRECT DOSE ADMINISTERED [None]
  - LOSS OF CONSCIOUSNESS [None]
  - MENTAL STATUS CHANGES [None]
  - NAUSEA [None]
